FAERS Safety Report 7397530-X (Version None)
Quarter: 2011Q2

REPORT INFORMATION
  Report Type: 
  Country: None (occurrence: None)
  Receive Date: 20110406
  Receipt Date: 20110401
  Transmission Date: 20111010
  Serious: Yes (Death, Hospitalization)
  Sender: FDA-Public Use
  Company Number: JP-ROXANE LABORATORIES, INC.-2011-RO-00449RO

PATIENT
  Age: 68 Year
  Sex: Female
  Weight: 33 kg

DRUGS (1)
  1. METHOTREXATE [Suspect]
     Indication: RHEUMATOID ARTHRITIS
     Dates: start: 20000101, end: 20090201

REACTIONS (3)
  - PNEUMONIA [None]
  - EPSTEIN-BARR VIRUS TEST POSITIVE [None]
  - LYMPHOPROLIFERATIVE DISORDER [None]
